FAERS Safety Report 11781859 (Version 1)
Quarter: 2015Q4

REPORT INFORMATION
  Report Type: Spontaneous
  Country: JP (occurrence: JP)
  Receive Date: 20151126
  Receipt Date: 20151126
  Transmission Date: 20160305
  Serious: Yes (Hospitalization)
  Sender: FDA-Public Use
  Company Number: JP-009507513-1511JPN014025

PATIENT
  Age: 12 Year
  Sex: Male

DRUGS (1)
  1. BONALON [Suspect]
     Active Substance: ALENDRONATE SODIUM
     Indication: GORHAM^S DISEASE
     Dosage: 35 MG, WEEKLY
     Route: 048

REACTIONS (1)
  - Pathological fracture [Unknown]
